FAERS Safety Report 19324930 (Version 3)
Quarter: 2021Q3

REPORT INFORMATION
  Report Type: Report from Study
  Country: US (occurrence: US)
  Receive Date: 20210528
  Receipt Date: 20210820
  Transmission Date: 20211014
  Serious: No
  Sender: FDA-Public Use
  Company Number: NVSC2021US117083

PATIENT
  Sex: Female

DRUGS (1)
  1. COSENTYX [Suspect]
     Active Substance: SECUKINUMAB
     Indication: PSORIATIC ARTHROPATHY
     Dosage: UNK UNK, QMO (BENEATH THE SKIN USUALLY VIA INJECTION)
     Route: 058

REACTIONS (3)
  - Mouth swelling [Unknown]
  - Lip swelling [Unknown]
  - Swollen tongue [Unknown]
